FAERS Safety Report 21020191 (Version 1)
Quarter: 2022Q2

REPORT INFORMATION
  Report Type: Report from Study
  Country: AR (occurrence: AR)
  Receive Date: 20220628
  Receipt Date: 20220628
  Transmission Date: 20220720
  Serious: Yes (Hospitalization)
  Sender: FDA-Public Use
  Company Number: AR-ABBVIE-22K-007-4449021-00

PATIENT
  Age: 53 Year
  Sex: Female

DRUGS (1)
  1. HUMIRA [Suspect]
     Active Substance: ADALIMUMAB
     Indication: Colitis ulcerative
     Route: 058
     Dates: start: 20161026, end: 202204

REACTIONS (3)
  - Gastrointestinal inflammation [Not Recovered/Not Resolved]
  - Gastrointestinal disorder [Unknown]
  - Pain [Unknown]

NARRATIVE: CASE EVENT DATE: 20220601
